FAERS Safety Report 8522350-X (Version None)
Quarter: 2012Q3

REPORT INFORMATION
  Report Type: 
  Country: None (occurrence: None)
  Receive Date: 20120706
  Receipt Date: 20120620
  Transmission Date: 20120928
  Serious: Yes (Life-Threatening)
  Sender: FDA-Public Use
  Company Number: TPG2012A01144

PATIENT
  Age: 75 Year
  Sex: Male

DRUGS (1)
  1. ACTOS [Suspect]
     Indication: DIABETES MELLITUS
     Dosage: PER ORAL
     Route: 048
     Dates: start: 20040101, end: 20120301

REACTIONS (3)
  - MALIGNANT URINARY TRACT NEOPLASM [None]
  - POLLAKIURIA [None]
  - HAEMATURIA [None]
